FAERS Safety Report 8532275-1 (Version None)
Quarter: 2012Q3

REPORT INFORMATION
  Report Type: 
  Country: None (occurrence: None)
  Receive Date: 20120724
  Receipt Date: 20120718
  Transmission Date: 20120928
  Serious: Yes (Other)
  Sender: FDA-Public Use
  Company Number: PHHY2012US061754

PATIENT
  Age: 21 Year
  Sex: Male

DRUGS (1)
  1. ISONIAZID [Suspect]
     Indication: TUBERCULOSIS

REACTIONS (5)
  - CHROMATURIA [None]
  - RHABDOMYOLYSIS [None]
  - DEHYDRATION [None]
  - MYALGIA [None]
  - ASTHENIA [None]
